FAERS Safety Report 5258096-3 (Version None)
Quarter: 2007Q1

REPORT INFORMATION
  Report Type: 
  Country: None (occurrence: None)
  Receive Date: 20070307
  Receipt Date: 20070223
  Transmission Date: 20070707
  Serious: Yes (Hospitalization)
  Sender: FDA-Public Use
  Company Number: AU-PFIZER INC-2006151801

PATIENT
  Sex: Female

DRUGS (4)
  1. DILANTIN [Suspect]
     Indication: CONVULSION
     Dosage: FREQ:AT NIGHT
     Route: 048
     Dates: start: 20061105, end: 20061204
  2. NEXIUM [Concomitant]
     Indication: GASTROOESOPHAGEAL REFLUX DISEASE
     Dosage: DAILY DOSE:20MG-FREQ:DAILY
     Route: 048
  3. VITAMINS [Concomitant]
  4. ALPRAZOLAM [Concomitant]
     Indication: ANXIETY
     Dosage: FREQ:THREE TIMES DAILY
     Route: 048

REACTIONS (4)
  - DISORIENTATION [None]
  - MOUTH ULCERATION [None]
  - PARAESTHESIA [None]
  - SKIN LESION [None]
